FAERS Safety Report 12421584 (Version 3)
Quarter: 2016Q4

REPORT INFORMATION
  Report Type: Report from Study
  Country: DE (occurrence: DE)
  Receive Date: 20160531
  Receipt Date: 20161012
  Transmission Date: 20170207
  Serious: Yes (Death, Other)
  Sender: FDA-Public Use
  Company Number: DE-BRISTOL-MYERS SQUIBB COMPANY-BMS-2016-041573

PATIENT
  Age: 64 Year
  Sex: Male
  Weight: 80 kg

DRUGS (2)
  1. APIXABAN [Suspect]
     Active Substance: APIXABAN
     Indication: CEREBROVASCULAR ACCIDENT PROPHYLAXIS
     Dosage: 5 MG, BID
     Route: 048
     Dates: start: 20130827
  2. APIXABAN [Suspect]
     Active Substance: APIXABAN
     Dosage: 2.5 MG, BID
     Route: 048

REACTIONS (7)
  - Anaemia [Fatal]
  - Subarachnoid haemorrhage [Fatal]
  - Sepsis [Fatal]
  - Renal impairment [Unknown]
  - Multiple organ dysfunction syndrome [Fatal]
  - Hypotonia [Unknown]
  - Staphylococcal bacteraemia [Fatal]

NARRATIVE: CASE EVENT DATE: 20160124
